FAERS Safety Report 5522316-8 (Version None)
Quarter: 2007Q4

REPORT INFORMATION
  Report Type: 
  Country: None (occurrence: None)
  Receive Date: 20071120
  Receipt Date: 20071113
  Transmission Date: 20080405
  Serious: Yes (Hospitalization)
  Sender: FDA-Public Use
  Company Number: US-ASTRAZENECA-2007UW22150

PATIENT
  Age: 16 Year
  Sex: Male
  Weight: 116.1 kg

DRUGS (12)
  1. FOSCAVIR [Suspect]
     Indication: CYTOMEGALOVIRUS TEST POSITIVE
     Route: 042
     Dates: start: 20070908, end: 20070914
  2. FOSCAVIR [Suspect]
     Route: 042
     Dates: start: 20070914, end: 20070920
  3. FOSCAVIR [Suspect]
     Route: 042
     Dates: start: 20070920, end: 20070928
  4. FOSCAVIR [Suspect]
     Route: 042
     Dates: start: 20070928, end: 20071001
  5. FOSCAVIR [Suspect]
     Route: 042
     Dates: start: 20071001, end: 20071003
  6. AMLODIPINE [Concomitant]
     Route: 048
  7. CEFEPIME [Concomitant]
     Route: 042
  8. LISINOPRIL [Concomitant]
     Route: 048
  9. MAGNESIUM OXIDE [Concomitant]
     Route: 048
  10. PREDNISONE TAB [Concomitant]
  11. VANCOMYCIN [Concomitant]
  12. PREVACID [Concomitant]

REACTIONS (5)
  - AMNESIA [None]
  - CONFUSIONAL STATE [None]
  - FATIGUE [None]
  - ILL-DEFINED DISORDER [None]
  - MENTAL STATUS CHANGES [None]
